FAERS Safety Report 5343266-6 (Version None)
Quarter: 2007Q2

REPORT INFORMATION
  Report Type: 
  Country: None (occurrence: None)
  Receive Date: 20070502
  Receipt Date: 20070115
  Transmission Date: 20071010
  Serious: Yes (Hospitalization)
  Sender: FDA-Public Use
  Company Number: PHEH2007US00907

PATIENT
  Sex: Male

DRUGS (3)
  1. LOTREL [Suspect]
     Indication: HYPERTENSION
     Dosage: SEE IMAGE
     Route: 048
     Dates: start: 19950101, end: 20061201
  2. LOTREL [Suspect]
     Indication: HYPERTENSION
     Dosage: SEE IMAGE
     Route: 048
     Dates: start: 20061201, end: 20070111
  3. LOTREL [Suspect]
     Indication: HYPERTENSION
     Dosage: SEE IMAGE
     Route: 048
     Dates: start: 20070112

REACTIONS (2)
  - ABDOMINAL PAIN [None]
  - INTESTINAL OPERATION [None]
